FAERS Safety Report 9101504 (Version 1)
Quarter: 2013Q1

REPORT INFORMATION
  Report Type: Report from Study
  Country: US (occurrence: US)
  Receive Date: 20130218
  Receipt Date: 20130218
  Transmission Date: 20140127
  Serious: No
  Sender: FDA-Public Use
  Company Number: US-ABBOTT-12P-163-0940014-00

PATIENT
  Sex: Female

DRUGS (1)
  1. SIMCOR 500MG/20MG [Suspect]
     Indication: PRODUCT USED FOR UNKNOWN INDICATION
     Dates: start: 201205

REACTIONS (2)
  - Poor quality sleep [Unknown]
  - Hyperhidrosis [Recovered/Resolved]
